FAERS Safety Report 20474001 (Version 12)
Quarter: 2022Q2

REPORT INFORMATION
  Report Type: Report from Study
  Country: NO (occurrence: None)
  Receive Date: 20220215
  Receipt Date: 20220527
  Transmission Date: 20220721
  Serious: Yes (Hospitalization)
  Sender: FDA-Public Use
  Company Number: NO-Eisai Medical Research-EC-2022-108580

PATIENT
  Age: 62 Year
  Sex: Male
  Weight: 98.3 kg

DRUGS (11)
  1. LENVATINIB [Suspect]
     Active Substance: LENVATINIB
     Indication: Clear cell renal cell carcinoma
     Route: 048
     Dates: start: 20211130, end: 20220203
  2. LENVATINIB [Suspect]
     Active Substance: LENVATINIB
     Dosage: DOSE REDUCED, STARTING AT 14 MG, FLUCATED DOSE
     Route: 048
     Dates: start: 20220303
  3. PEMBROLIZUMAB [Suspect]
     Active Substance: PEMBROLIZUMAB
     Indication: Clear cell renal cell carcinoma
     Route: 041
     Dates: start: 20211130, end: 20211130
  4. PEMBROLIZUMAB [Suspect]
     Active Substance: PEMBROLIZUMAB
     Route: 041
     Dates: start: 20220111, end: 20220111
  5. PEMBROLIZUMAB [Suspect]
     Active Substance: PEMBROLIZUMAB
     Route: 041
     Dates: start: 20220224, end: 20220224
  6. FERRIC SULFATE [Concomitant]
     Active Substance: FERRIC SULFATE
     Dates: start: 201612, end: 20220201
  7. DUTASTERIDE\TAMSULOSIN [Concomitant]
     Active Substance: DUTASTERIDE\TAMSULOSIN
     Dates: start: 20210906
  8. MIRABEGRON [Concomitant]
     Active Substance: MIRABEGRON
     Dates: start: 20211109, end: 20220222
  9. PANTOPRAZOLE [Concomitant]
     Active Substance: PANTOPRAZOLE
     Dates: start: 20211214
  10. FRAGMIN [Concomitant]
     Active Substance: DALTEPARIN SODIUM
     Route: 042
     Dates: start: 20211216, end: 20220406
  11. FRAGMIN [Concomitant]
     Active Substance: DALTEPARIN SODIUM
     Route: 042
     Dates: start: 20211217, end: 20220406

REACTIONS (1)
  - Diarrhoea [Recovered/Resolved]

NARRATIVE: CASE EVENT DATE: 20220118
